FAERS Safety Report 5699392-5 (Version None)
Quarter: 2008Q2

REPORT INFORMATION
  Report Type: 
  Country: None (occurrence: None)
  Receive Date: 20080407
  Receipt Date: 20080327
  Transmission Date: 20081010
  Serious: Yes (Other)
  Sender: FDA-Public Use
  Company Number: CHPA2008US05506

PATIENT
  Age: 18 Year
  Sex: Female

DRUGS (1)
  1. EX-LAX STR LAX PILLS SENNA (NCH)(SENNA GLYCOSIDES (CA SALTS OF PURIFIE [Suspect]
     Indication: CONSTIPATION
     Dosage: 6 PILLS IN A DAY FOR MANY MONTHS, ORAL
     Route: 048

REACTIONS (5)
  - COLON OPERATION [None]
  - DRUG DEPENDENCE [None]
  - INCORRECT DOSE ADMINISTERED [None]
  - INTENTIONAL DRUG MISUSE [None]
  - OVERDOSE [None]
